FAERS Safety Report 16387937 (Version 1)
Quarter: 2019Q2

REPORT INFORMATION
  Report Type: Spontaneous
  Country: US (occurrence: US)
  Receive Date: 20190426
  Receipt Date: 20190426
  Transmission Date: 20190711
  Serious: Yes (Hospitalization)
  Sender: FDA-Public Use
  Company Number: None

PATIENT
  Age: 49 Year
  Sex: Female
  Weight: 65.7 kg

DRUGS (3)
  1. LEUCOVORIN CALCIUM. [Suspect]
     Active Substance: LEUCOVORIN CALCIUM
     Dates: end: 20190417
  2. 5-FLUOROURACIL (5-FU) [Suspect]
     Active Substance: FLUOROURACIL
     Dates: end: 20190417
  3. ELOXATIN [Suspect]
     Active Substance: OXALIPLATIN
     Dates: end: 20190404

REACTIONS (7)
  - Tachycardia [None]
  - Dyspnoea [None]
  - Bradycardia [None]
  - Fibrin D dimer increased [None]
  - Infusion related reaction [None]
  - Palpitations [None]
  - Dizziness [None]

NARRATIVE: CASE EVENT DATE: 20190423
